FAERS Safety Report 7360334-8 (Version None)
Quarter: 2011Q1

REPORT INFORMATION
  Report Type: 
  Country: None (occurrence: None)
  Receive Date: 20110318
  Receipt Date: 20100907
  Transmission Date: 20110831
  Serious: Yes (Other)
  Sender: FDA-Public Use
  Company Number: US-BAYER-201013059NA

PATIENT
  Sex: Female
  Weight: 108.84 kg

DRUGS (9)
  1. METFORMIN HCL [Concomitant]
     Indication: POLYCYSTIC OVARIES
  2. YAZ [Suspect]
     Indication: CONTRACEPTION
     Dosage: UNK UNK, QD
     Route: 048
     Dates: start: 20070201, end: 20090401
  3. YAZ [Suspect]
     Indication: MENSTRUAL CYCLE MANAGEMENT
  4. YASMIN [Suspect]
     Indication: POLYCYSTIC OVARIES
  5. YASMIN [Suspect]
     Indication: CONTRACEPTION
     Dosage: UNK UNK, QD
     Route: 048
     Dates: start: 20060421, end: 20070131
  6. ATENOLOL AND CHLORTHALIDONE [Concomitant]
     Indication: HYPERTENSION
     Dosage: UNK UNK, QD
     Route: 048
     Dates: start: 20021101
  7. YASMIN [Suspect]
     Indication: MENSTRUAL CYCLE MANAGEMENT
  8. YAZ [Suspect]
     Indication: POLYCYSTIC OVARIES
  9. METFORMIN HCL [Concomitant]
     Indication: DIABETES MELLITUS
     Dosage: 500 MG, BID
     Route: 048
     Dates: start: 20061101, end: 20080401

REACTIONS (4)
  - CHOLECYSTITIS CHRONIC [None]
  - GALLBLADDER DISORDER [None]
  - BILIARY DYSKINESIA [None]
  - ABDOMINAL PAIN [None]
